FAERS Safety Report 9154006 (Version 1)
Quarter: 2013Q1

REPORT INFORMATION
  Report Type: Spontaneous
  Country: CN (occurrence: CN)
  Receive Date: 20130311
  Receipt Date: 20130311
  Transmission Date: 20140127
  Serious: Yes (Other)
  Sender: FDA-Public Use
  Company Number: CN-PFIZER INC-2013071010

PATIENT
  Age: 84 Year
  Sex: Female

DRUGS (5)
  1. VFEND [Suspect]
     Dosage: UNK
     Dates: start: 20130218, end: 20130224
  2. PIPERACILLIN/TAZOBACTAM [Concomitant]
  3. LACTULOSE [Concomitant]
  4. PLAVIX [Concomitant]
  5. TRIMETAZIDINE [Concomitant]

REACTIONS (4)
  - Gastrointestinal disorder [Not Recovered/Not Resolved]
  - Haematochezia [Not Recovered/Not Resolved]
  - Vomiting [Not Recovered/Not Resolved]
  - Heart rate increased [Recovered/Resolved]
